FAERS Safety Report 18179076 (Version 1)
Quarter: 2020Q3

REPORT INFORMATION
  Report Type: Spontaneous
  Country: DE (occurrence: DE)
  Receive Date: 20200821
  Receipt Date: 20200821
  Transmission Date: 20201103
  Serious: Yes (Hospitalization)
  Sender: FDA-Public Use
  Company Number: DE-TEVA-2020-DE-1815754

PATIENT
  Age: 91 Year
  Sex: Female

DRUGS (9)
  1. BETAHISTIN [Concomitant]
     Active Substance: BETAHISTINE
     Dosage: 18 MILLIGRAM DAILY; 6 MG, 1?1?1?0
     Route: 048
  2. HCT [Suspect]
     Active Substance: HYDROCHLOROTHIAZIDE
     Dosage: 25 MILLIGRAM DAILY; 1?0?0?0
     Route: 048
  3. AMLODIPIN [Concomitant]
     Active Substance: AMLODIPINE BESYLATE
     Dosage: 5 MILLIGRAM DAILY;  0?1?0?0
     Route: 048
  4. RAMIPRIL. [Concomitant]
     Active Substance: RAMIPRIL
     Dosage: 10 MILLIGRAM DAILY; 5 MG, 1?0?1?0
     Route: 048
  5. XARELTO [Concomitant]
     Active Substance: RIVAROXABAN
     Dosage: 15 MILLIGRAM DAILY;  1?0?0?0
     Route: 048
  6. ZOPICLON [Concomitant]
     Active Substance: ZOPICLONE
     Dosage: 7.5 MILLIGRAM DAILY;  0?0?0?1
     Route: 048
  7. BALDRIAN [Concomitant]
     Active Substance: VALERIAN
     Dosage: 135 MILLIGRAM DAILY; 45 MG, 1?1?1?0
     Route: 048
  8. PANTOPRAZOL [Concomitant]
     Active Substance: PANTOPRAZOLE SODIUM
     Dosage: 40 MILLIGRAM DAILY;  1?0?0?0
     Route: 048
  9. MIRTAZAPIN [Concomitant]
     Active Substance: MIRTAZAPINE
     Dosage: 30 MILLIGRAM DAILY;  0?0?1?0
     Route: 048

REACTIONS (8)
  - Disorientation [Unknown]
  - General physical health deterioration [Unknown]
  - Disturbance in attention [Unknown]
  - Nausea [Unknown]
  - Electrolyte imbalance [Unknown]
  - Aphasia [Unknown]
  - Fatigue [Unknown]
  - Dizziness [Unknown]
